FAERS Safety Report 5809679-0 (Version None)
Quarter: 2008Q3

REPORT INFORMATION
  Report Type: 
  Country: None (occurrence: None)
  Receive Date: 20080715
  Receipt Date: 20080701
  Transmission Date: 20090109
  Serious: Yes (Hospitalization, Other)
  Sender: FDA-Public Use
  Company Number: US-BAYER-200614682BWH

PATIENT
  Age: 76 Year
  Sex: Female

DRUGS (8)
  1. NEXAVAR [Suspect]
     Indication: RENAL CELL CARCINOMA
     Dosage: TOTAL DAILY DOSE: 200 MG  UNIT DOSE: 200 MG
     Route: 048
     Dates: start: 20060101
  2. NEXAVAR [Suspect]
     Dosage: TOTAL DAILY DOSE: 400 MG  UNIT DOSE: 200 MG
     Route: 048
     Dates: start: 20060101, end: 20060713
  3. NEXAVAR [Suspect]
     Dosage: TOTAL DAILY DOSE: 200 MG  UNIT DOSE: 200 MG
     Route: 048
     Dates: start: 20060101, end: 20060101
  4. NEXAVAR [Suspect]
     Route: 048
     Dates: start: 20060401, end: 20060101
  5. AVASTIN [Suspect]
  6. ANTIHYPERTENSIVE MEDICATION (NOS) [Concomitant]
  7. DIURETICS (NOS) [Concomitant]
  8. ALLERGY SHOTS [Concomitant]

REACTIONS (8)
  - BLISTER [None]
  - BLOOD PRESSURE INCREASED [None]
  - CHEST DISCOMFORT [None]
  - CORONARY ARTERY OCCLUSION [None]
  - DIARRHOEA [None]
  - FATIGUE [None]
  - MYOCARDIAL INFARCTION [None]
  - PAIN [None]
